FAERS Safety Report 6442392-8 (Version None)
Quarter: 2009Q4

REPORT INFORMATION
  Report Type: 
  Country: None (occurrence: None)
  Receive Date: 20091112
  Receipt Date: 20091103
  Transmission Date: 20100525
  Serious: Yes (Other)
  Sender: FDA-Public Use
  Company Number: 2009SP034629

PATIENT
  Age: 88 Year
  Sex: Male

DRUGS (2)
  1. MIRALAX [Suspect]
     Indication: DRUG USE FOR UNKNOWN INDICATION
     Dosage: 17 GM;PO
     Route: 048
     Dates: start: 20091103
  2. BLOOD PRESSURE CON. [Concomitant]

REACTIONS (2)
  - HEART RATE DECREASED [None]
  - PRESYNCOPE [None]
